FAERS Safety Report 16561425 (Version 2)
Quarter: 2019Q3

REPORT INFORMATION
  Report Type: Spontaneous
  Country: ES (occurrence: ES)
  Receive Date: 20190711
  Receipt Date: 20190719
  Transmission Date: 20191004
  Serious: Yes (Hospitalization)
  Sender: FDA-Public Use
  Company Number: PHHY2019ES153903

PATIENT
  Age: 56 Year
  Sex: Female

DRUGS (4)
  1. PALIPERIDONE PALMITATE [Suspect]
     Active Substance: PALIPERIDONE PALMITATE
     Indication: PRODUCT USED FOR UNKNOWN INDICATION
     Dosage: UNK
     Route: 065
  2. ZYPREXA [Suspect]
     Active Substance: OLANZAPINE
     Dosage: 5 MG, QD
     Route: 048
  3. ZYPREXA [Suspect]
     Active Substance: OLANZAPINE
     Dosage: 10 MG, QD
     Route: 048
     Dates: end: 20150815
  4. ZYPREXA [Suspect]
     Active Substance: OLANZAPINE
     Indication: PRODUCT USED FOR UNKNOWN INDICATION
     Dosage: 15 MG, QD
     Route: 048

REACTIONS (24)
  - Renal impairment [Unknown]
  - Neuroleptic malignant syndrome [Recovering/Resolving]
  - Haematuria [Unknown]
  - Gait disturbance [Recovering/Resolving]
  - Tachycardia [Unknown]
  - Hypoventilation [Unknown]
  - Seizure [Unknown]
  - General physical health deterioration [Recovering/Resolving]
  - Tachypnoea [Unknown]
  - Bradyphrenia [Unknown]
  - Acute kidney injury [Unknown]
  - Pyuria [Unknown]
  - Bacteriuria [Unknown]
  - Encephalopathy [Recovering/Resolving]
  - Hypotension [Unknown]
  - Mucosal dryness [Unknown]
  - Metabolic acidosis [Unknown]
  - Eye movement disorder [Recovering/Resolving]
  - Clonus [Recovering/Resolving]
  - Alpha haemolytic streptococcal infection [Unknown]
  - Rhabdomyolysis [Unknown]
  - Hypernatraemia [Unknown]
  - Psychomotor skills impaired [Recovering/Resolving]
  - Language disorder [Recovering/Resolving]

NARRATIVE: CASE EVENT DATE: 20150814
